FAERS Safety Report 5155580-8 (Version None)
Quarter: 2006Q4

REPORT INFORMATION
  Report Type: 
  Country: None (occurrence: None)
  Receive Date: 20061114
  Receipt Date: 20061103
  Transmission Date: 20070319
  Serious: Yes (Other)
  Sender: FDA-Public Use
  Company Number: GXKR2006US07131

PATIENT
  Sex: Male

DRUGS (1)
  1. FLECAINIDE (NGX) (FLECAINIDE) UNKNOWN [Suspect]
     Dosage: TRANSPLACENTAL
     Route: 064

REACTIONS (3)
  - CAESAREAN SECTION [None]
  - DRUG EXPOSURE DURING PREGNANCY [None]
  - PREMATURE BABY [None]
